FAERS Safety Report 7813635-0 (Version None)
Quarter: 2011Q4

REPORT INFORMATION
  Report Type: 
  Country: None (occurrence: None)
  Receive Date: 20111014
  Receipt Date: 20111007
  Transmission Date: 20120403
  Serious: No
  Sender: FDA-Public Use
  Company Number: US-BIOGENIDEC-2011BI038490

PATIENT
  Age: 47 Year
  Sex: Female

DRUGS (3)
  1. TOPAMAX [Concomitant]
     Indication: HEADACHE
     Dates: start: 20050101, end: 20110801
  2. AVONEX [Suspect]
     Indication: MULTIPLE SCLEROSIS
     Route: 030
     Dates: start: 20110614
  3. LEXAPRO [Concomitant]
     Indication: DEPRESSION
     Dates: start: 20080101

REACTIONS (5)
  - MULTIPLE SCLEROSIS RELAPSE [None]
  - MUSCLE ATROPHY [None]
  - MUSCULAR WEAKNESS [None]
  - WEIGHT INCREASED [None]
  - STRESS [None]
